FAERS Safety Report 15334818 (Version 3)
Quarter: 2019Q1

REPORT INFORMATION
  Report Type: Spontaneous
  Country: US (occurrence: US)
  Receive Date: 20180830
  Receipt Date: 20190201
  Transmission Date: 20190417
  Serious: No
  Sender: FDA-Public Use
  Company Number: US-GLAXOSMITHKLINE-US2018153835

PATIENT
  Sex: Male

DRUGS (3)
  1. ZOSTAVAX [Concomitant]
     Active Substance: VARICELLA-ZOSTER VIRUS STRAIN OKA/MERCK LIVE ANTIGEN
  2. NUCALA [Suspect]
     Active Substance: MEPOLIZUMAB
     Indication: ASTHMA
     Dosage: UNK UNK, CYC
     Route: 058
     Dates: start: 201702
  3. PREDNISONE. [Concomitant]
     Active Substance: PREDNISONE

REACTIONS (5)
  - Blood immunoglobulin E increased [Unknown]
  - Blood pressure diastolic decreased [Recovered/Resolved with Sequelae]
  - Hypotension [Recovered/Resolved with Sequelae]
  - Dizziness [Recovered/Resolved with Sequelae]
  - Incorrect route of product administration [Unknown]

NARRATIVE: CASE EVENT DATE: 2017
